FAERS Safety Report 6853200-5 (Version None)
Quarter: 2010Q3

REPORT INFORMATION
  Report Type: 
  Country: None (occurrence: None)
  Receive Date: 20100717
  Receipt Date: 20080129
  Transmission Date: 20110219
  Serious: No
  Sender: FDA-Public Use
  Company Number: US-PFIZER INC-2007099569

PATIENT
  Sex: Male
  Weight: 122.7 kg

DRUGS (15)
  1. CHANTIX [Suspect]
     Indication: SMOKING CESSATION THERAPY
     Dates: start: 20071117, end: 20071214
  2. PLAVIX [Concomitant]
  3. LISINOPRIL [Concomitant]
  4. ADVAIR DISKUS 100/50 [Concomitant]
  5. METFORMIN HCL [Concomitant]
  6. METOPROLOL [Concomitant]
  7. CRESTOR [Concomitant]
  8. VENLAFAXINE [Concomitant]
  9. ACETYLSALICYLIC ACID [Concomitant]
  10. GEMFIBROZIL [Concomitant]
  11. GLIMEPIRIDE [Concomitant]
  12. ISOSORBIDE [Concomitant]
  13. ACTOS [Concomitant]
  14. PROTONIX [Concomitant]
  15. BYETTA [Concomitant]

REACTIONS (3)
  - ABNORMAL DREAMS [None]
  - FEELING JITTERY [None]
  - NERVOUSNESS [None]
